FAERS Safety Report 9147415 (Version 1)
Quarter: 2013Q1

REPORT INFORMATION
  Report Type: Spontaneous
  Country: DK (occurrence: DK)
  Receive Date: 20130307
  Receipt Date: 20130307
  Transmission Date: 20140127
  Serious: Yes (Hospitalization)
  Sender: FDA-Public Use
  Company Number: DK-PFIZER INC-2013076289

PATIENT
  Age: 64 Year
  Sex: Female

DRUGS (1)
  1. DICLOFENAC [Suspect]
     Dosage: 50 MG, 3X/DAY

REACTIONS (2)
  - Large intestinal stenosis [Recovered/Resolved]
  - Gastrointestinal disorder [Recovered/Resolved]
